FAERS Safety Report 9704404 (Version 3)
Quarter: 2013Q4

REPORT INFORMATION
  Report Type: Spontaneous
  Country: AU (occurrence: AU)
  Receive Date: 20131122
  Receipt Date: 20131210
  Transmission Date: 20140711
  Serious: Yes (Other)
  Sender: FDA-Public Use
  Company Number: PHHY2013AU123031

PATIENT
  Age: 73 Year
  Sex: Female

DRUGS (14)
  1. FEMARA [Suspect]
     Indication: BREAST CANCER METASTATIC
     Dosage: UNK UKN, UNK
  2. EVEROLIMUS [Suspect]
     Indication: BREAST CANCER
     Dosage: 10 MG, QD
     Route: 048
     Dates: start: 201304, end: 20131030
  3. EVEROLIMUS [Suspect]
     Dosage: 5 MG, QD
     Route: 048
     Dates: start: 201310
  4. EXEMESTANE [Suspect]
     Indication: BREAST CANCER
     Dosage: 25 MG, UNK
     Route: 048
     Dates: start: 201304
  5. TAMOXIFEN [Suspect]
     Indication: BREAST CANCER
     Dosage: UNK UKN, UNK
     Dates: start: 201201, end: 201211
  6. XELODA [Suspect]
     Indication: BREAST CANCER
  7. MEGACE [Suspect]
     Dosage: UNK UKN, UNK
     Dates: start: 201211, end: 201303
  8. OXYCONTIN [Concomitant]
     Dosage: UNK UKN, UNK
  9. IBANDRONATE [Concomitant]
     Dosage: UNK UKN, 4 WEEKLY
  10. ENDONE [Concomitant]
     Dosage: UNK UKN, UNK
  11. POTASSIUM [Concomitant]
     Dosage: UNK UKN, UNK
  12. MAGNESIUM [Concomitant]
     Dosage: UNK UKN, UNK
  13. ZOLOFT [Concomitant]
     Dosage: UNK UKN, UNK
  14. AROMASINE [Concomitant]
     Dosage: UNK UKN, UNK

REACTIONS (12)
  - Neoplasm malignant [Unknown]
  - Pneumonitis [Recovered/Resolved]
  - Metastases to lung [Unknown]
  - Metastases to liver [Unknown]
  - Breast cancer [Unknown]
  - Malignant neoplasm progression [Unknown]
  - Pleural effusion [Unknown]
  - Muscular weakness [Recovered/Resolved]
  - Pain [Recovered/Resolved]
  - Decreased appetite [Unknown]
  - Breast mass [Unknown]
  - Tumour marker increased [Unknown]
